FAERS Safety Report 18442541 (Version 1)
Quarter: 2020Q4

REPORT INFORMATION
  Report Type: Spontaneous
  Country: JP (occurrence: JP)
  Receive Date: 20201029
  Receipt Date: 20201029
  Transmission Date: 20210114
  Serious: Yes (Other)
  Sender: FDA-Public Use
  Company Number: JP-ABBVIE-20K-087-3609501-00

PATIENT
  Age: 79 Year
  Sex: Female

DRUGS (2)
  1. POPSCAINE [Suspect]
     Active Substance: LEVOBUPIVACAINE HYDROCHLORIDE
     Indication: POSTOPERATIVE ANALGESIA
     Dosage: 0.5 PERCENT INJ. 50MG/10ML
     Route: 065
  2. POPSCAINE [Suspect]
     Active Substance: LEVOBUPIVACAINE HYDROCHLORIDE
     Indication: NERVE BLOCK

REACTIONS (2)
  - Cerebral infarction [Recovered/Resolved]
  - Pulmonary venous thrombosis [Recovered/Resolved]
